FAERS Safety Report 18251607 (Version 1)
Quarter: 2020Q3

REPORT INFORMATION
  Report Type: Spontaneous
  Country: TR (occurrence: TR)
  Receive Date: 20200910
  Receipt Date: 20200910
  Transmission Date: 20201103
  Serious: Yes (Hospitalization, Other)
  Sender: FDA-Public Use
  Company Number: TR-SA-2020SA235436

PATIENT

DRUGS (6)
  1. ADALIMUMAB [Suspect]
     Active Substance: ADALIMUMAB
     Indication: RHEUMATOID ARTHRITIS
     Dosage: UNK
  2. LEFLUNOMIDE. [Suspect]
     Active Substance: LEFLUNOMIDE
     Indication: RHEUMATOID ARTHRITIS
     Dosage: UNK
  3. CORTICOSTEROID NOS [Suspect]
     Active Substance: CORTICOSTEROID NOS
     Indication: RHEUMATOID ARTHRITIS
     Dosage: 4 MG, QD (LOW DOSE )
  4. TOFACITINIB [Suspect]
     Active Substance: TOFACITINIB
     Indication: RHEUMATOID ARTHRITIS
     Dosage: 10 MG, QD STARTED A YEAR AGO
  5. METHOTREXATE. [Suspect]
     Active Substance: METHOTREXATE
     Indication: RHEUMATOID ARTHRITIS
     Dosage: 15 MG, QW
  6. SULFASALAZINE. [Suspect]
     Active Substance: SULFASALAZINE
     Indication: RHEUMATOID ARTHRITIS
     Dosage: UNK

REACTIONS (11)
  - Lymphopenia [Recovering/Resolving]
  - Rash vesicular [Recovering/Resolving]
  - Leukopenia [Recovering/Resolving]
  - Rash [Recovering/Resolving]
  - Facial paralysis [Recovering/Resolving]
  - Tinnitus [Recovering/Resolving]
  - Varicella zoster virus infection [Recovering/Resolving]
  - Herpes zoster oticus [Recovering/Resolving]
  - Infection reactivation [Recovering/Resolving]
  - Rash erythematous [Recovering/Resolving]
  - Deafness unilateral [Recovering/Resolving]
